FAERS Safety Report 5693608-7 (Version None)
Quarter: 2008Q2

REPORT INFORMATION
  Report Type: 
  Country: None (occurrence: None)
  Receive Date: 20080328
  Receipt Date: 20071212
  Transmission Date: 20081010
  Serious: Yes (Other)
  Sender: FDA-Public Use
  Company Number: US-WYE-H01693007

PATIENT
  Sex: Male
  Weight: 75.82 kg

DRUGS (2)
  1. PROTONIX [Suspect]
     Indication: IRRITABLE BOWEL SYNDROME
     Dosage: ^40 MG DAILY EVERY 3-4 MONTHS FOR TWO WEEKS^, ORAL
     Route: 048
  2. LANTUS [Concomitant]

REACTIONS (5)
  - ASTHENIA [None]
  - BLOOD PRESSURE INCREASED [None]
  - HEART RATE INCREASED [None]
  - PRESYNCOPE [None]
  - UNEVALUABLE EVENT [None]
